FAERS Safety Report 5066126-7 (Version None)
Quarter: 2006Q3

REPORT INFORMATION
  Report Type: 
  Country: None (occurrence: None)
  Receive Date: 20060725
  Receipt Date: 20060707
  Transmission Date: 20061208
  Serious: Yes (Other)
  Sender: FDA-Public Use
  Company Number: DSA_28420_2006

PATIENT
  Age: 43 Year
  Sex: Male

DRUGS (9)
  1. TEMESTA [Suspect]
     Dosage: 3.5 MG QD PO
     Route: 048
     Dates: start: 20060127, end: 20060131
  2. TEMESTA [Suspect]
     Dosage: 2 MG QD PO
     Route: 048
     Dates: start: 20060201, end: 20060202
  3. TEMESTA [Suspect]
     Dosage: 1 MG QD PO
     Route: 048
     Dates: start: 20060203, end: 20060205
  4. TEMESTA [Suspect]
     Dosage: 0.5 MG QD PO
     Route: 048
     Dates: start: 20060206, end: 20060207
  5. STILNOX [Suspect]
     Dosage: 10 MG QD PO
     Route: 048
     Dates: start: 20060128, end: 20060130
  6. NOVALGIN [Concomitant]
  7. METHADONE HCL [Concomitant]
  8. PROMAZINE HYDROCHLORIDE [Concomitant]
  9. METAMIZOLE [Concomitant]

REACTIONS (6)
  - BLOOD PRESSURE DIASTOLIC INCREASED [None]
  - BLOOD PRESSURE SYSTOLIC INCREASED [None]
  - GASTROOESOPHAGEAL REFLUX DISEASE [None]
  - HICCUPS [None]
  - TACHYCARDIA [None]
  - VOMITING [None]
